FAERS Safety Report 6964621-4 (Version None)
Quarter: 2010Q3

REPORT INFORMATION
  Report Type: 
  Country: None (occurrence: None)
  Receive Date: 20100903
  Receipt Date: 20100826
  Transmission Date: 20110219
  Serious: Yes (Other)
  Sender: FDA-Public Use
  Company Number: US-ASTRAZENECA-2007UW21680

PATIENT
  Age: 17220 Day
  Sex: Female
  Weight: 72.6 kg

DRUGS (47)
  1. SEROQUEL [Suspect]
     Indication: DEPRESSION
     Route: 048
     Dates: start: 20010401
  2. SEROQUEL [Suspect]
     Indication: INSOMNIA
     Route: 048
     Dates: start: 20010401
  3. SEROQUEL [Suspect]
     Indication: BORDERLINE PERSONALITY DISORDER
     Route: 048
     Dates: start: 20010401
  4. SEROQUEL [Suspect]
     Dosage: 25 MG TO 250 MG
     Route: 048
     Dates: start: 20030522, end: 20060926
  5. SEROQUEL [Suspect]
     Dosage: 25 MG TO 250 MG
     Route: 048
     Dates: start: 20030522, end: 20060926
  6. SEROQUEL [Suspect]
     Dosage: 25 MG TO 250 MG
     Route: 048
     Dates: start: 20030522, end: 20060926
  7. SEROQUEL [Suspect]
     Dosage: 100 MG TO 250 MG
     Route: 048
     Dates: start: 20040101, end: 20061001
  8. SEROQUEL [Suspect]
     Dosage: 100 MG TO 250 MG
     Route: 048
     Dates: start: 20040101, end: 20061001
  9. SEROQUEL [Suspect]
     Dosage: 100 MG TO 250 MG
     Route: 048
     Dates: start: 20040101, end: 20061001
  10. SEROQUEL [Suspect]
     Dosage: 25 MG - 200 MG AT NIGHT
     Route: 048
     Dates: start: 20050121
  11. SEROQUEL [Suspect]
     Dosage: 25 MG - 200 MG AT NIGHT
     Route: 048
     Dates: start: 20050121
  12. SEROQUEL [Suspect]
     Dosage: 25 MG - 200 MG AT NIGHT
     Route: 048
     Dates: start: 20050121
  13. THEOPHYLLINE-SR [Concomitant]
     Dates: start: 20050118
  14. TRICOR [Concomitant]
     Dates: start: 20050118
  15. LIPITOR [Concomitant]
     Dates: start: 20050118
  16. ISOSORBIDE MN/IMDUR [Concomitant]
     Dates: start: 20050121
  17. FLUOXETINE [Concomitant]
     Dates: start: 20050121
  18. ABILIFY [Concomitant]
     Dates: start: 20050121
  19. ZETIA [Concomitant]
     Dates: start: 20050127
  20. NADOLOL [Concomitant]
     Dates: start: 20050217
  21. DESYREL [Concomitant]
     Dates: end: 20010401
  22. WELLBUTRIN XL [Concomitant]
     Dates: start: 20010502
  23. RISPERDAL [Concomitant]
     Indication: DEPRESSION
     Dates: start: 20030401, end: 20040301
  24. RISPERDAL [Concomitant]
     Indication: BORDERLINE PERSONALITY DISORDER
     Dates: start: 20030401, end: 20040301
  25. ZYPREXA [Concomitant]
     Indication: DEPRESSION
     Dates: start: 20030424
  26. ZYPREXA [Concomitant]
     Indication: BORDERLINE PERSONALITY DISORDER
     Dates: start: 20030424
  27. ELAVIL [Concomitant]
     Dates: start: 19950101, end: 20010401
  28. XANAX [Concomitant]
     Dates: start: 20060101
  29. EFFEXOR [Concomitant]
     Dates: start: 20050101
  30. CYMBALTA [Concomitant]
     Dates: start: 20080101
  31. VISTARIL [Concomitant]
     Dates: end: 20010401
  32. DEPAKOTE [Concomitant]
     Dosage: 500 IN THE MORNING, 1000 AT NIGHT
     Dates: start: 20010401
  33. SINEQUAN [Concomitant]
     Dosage: 200 MG AT NIGHT , REDUCED 150 MG HS
     Dates: start: 20010401
  34. CELEXA [Concomitant]
     Dosage: 40 MG IN MORNING, INCREASED TO 60 MG AT NOON
     Dates: start: 20010401
  35. SERZONE [Concomitant]
     Dates: start: 20010401
  36. RESTORIL [Concomitant]
     Dates: end: 20010401
  37. KLONOPIN [Concomitant]
     Dosage: AS REQUIRED
     Dates: start: 20010401
  38. POTASSIUM [Concomitant]
  39. TIAZAC [Concomitant]
  40. LASIX [Concomitant]
  41. PRILOSEC [Concomitant]
  42. LOPID [Concomitant]
  43. PREMARIN [Concomitant]
  44. SIMVASTATIN [Concomitant]
  45. FIORICET [Concomitant]
  46. SOMA [Concomitant]
  47. BUMEX [Concomitant]

REACTIONS (4)
  - DIABETIC NEUROPATHY [None]
  - HYPOGLYCAEMIA [None]
  - STAPHYLOCOCCAL INFECTION [None]
  - TYPE 2 DIABETES MELLITUS [None]
